FAERS Safety Report 6220776-0 (Version None)
Quarter: 2009Q2

REPORT INFORMATION
  Report Type: 
  Country: None (occurrence: None)
  Receive Date: 20090610
  Receipt Date: 20090605
  Transmission Date: 20091009
  Serious: Yes (Other)
  Sender: FDA-Public Use
  Company Number: US-BAYER-200917221NA

PATIENT
  Age: 24 Year
  Sex: Female
  Weight: 57 kg

DRUGS (7)
  1. MIRENA [Suspect]
     Indication: CONTRACEPTION
     Route: 015
     Dates: start: 20050601
  2. ANTIBIOTICS [Concomitant]
  3. DOXYCLINE [Concomitant]
  4. MICROBID [Concomitant]
  5. NEOPROXIN [Concomitant]
  6. VICODIN [Concomitant]
  7. CIPROFLOXACIN [Concomitant]

REACTIONS (3)
  - IUCD COMPLICATION [None]
  - PELVIC INFLAMMATORY DISEASE [None]
  - URINARY TRACT INFECTION [None]
